FAERS Safety Report 13927805 (Version 1)
Quarter: 2017Q3

REPORT INFORMATION
  Report Type: Spontaneous
  Country: US (occurrence: None)
  Receive Date: 20170831
  Receipt Date: 20170831
  Transmission Date: 20171127
  Serious: Yes (Hospitalization)
  Sender: FDA-Public Use
  Company Number: None

PATIENT
  Age: 50 Year
  Sex: Female

DRUGS (32)
  1. PROAIR HFA [Concomitant]
     Active Substance: ALBUTEROL SULFATE
  2. CARDIZEM LA [Concomitant]
     Active Substance: DILTIAZEM HYDROCHLORIDE
  3. ASPIRIN. [Concomitant]
     Active Substance: ASPIRIN
  4. ONDANSETRON [Concomitant]
     Active Substance: ONDANSETRON
  5. VALSARTAN. [Concomitant]
     Active Substance: VALSARTAN
  6. SINGULAIR [Concomitant]
     Active Substance: MONTELUKAST SODIUM
  7. VITAMIN D3 [Concomitant]
     Active Substance: CHOLECALCIFEROL
  8. ZOFRAN [Concomitant]
     Active Substance: ONDANSETRON HYDROCHLORIDE
  9. LEFLUNOMIDE. [Concomitant]
     Active Substance: LEFLUNOMIDE
  10. METOPROLOL TARTRATE. [Concomitant]
     Active Substance: METOPROLOL TARTRATE
  11. GABAPENTIN. [Concomitant]
     Active Substance: GABAPENTIN
  12. PREVACID [Concomitant]
     Active Substance: LANSOPRAZOLE
  13. LANSOPRAZOLE. [Concomitant]
     Active Substance: LANSOPRAZOLE
  14. TIZANIDINE. [Concomitant]
     Active Substance: TIZANIDINE
  15. TRIAMCINOLON [Concomitant]
  16. MONTELUKAST [Concomitant]
     Active Substance: MONTELUKAST SODIUM
  17. ORENCIA [Suspect]
     Active Substance: ABATACEPT
     Indication: RHEUMATOID ARTHRITIS
     Route: 058
     Dates: start: 20160726
  18. PERCOCET [Concomitant]
     Active Substance: ACETAMINOPHEN\OXYCODONE HYDROCHLORIDE
  19. ZOLPIDEM ER [Concomitant]
     Active Substance: ZOLPIDEM\ZOLPIDEM TARTRATE
  20. DIAZEPAM. [Concomitant]
     Active Substance: DIAZEPAM
  21. IMITREX [Concomitant]
     Active Substance: SUMATRIPTAN SUCCINATE
  22. SUMATRIPTAN. [Concomitant]
     Active Substance: SUMATRIPTAN
  23. AMBIEN CR [Concomitant]
     Active Substance: ZOLPIDEM TARTRATE
  24. PREDNISONE. [Concomitant]
     Active Substance: PREDNISONE
  25. VALIUM [Concomitant]
     Active Substance: DIAZEPAM
  26. SEASONAL IC [Concomitant]
  27. NASACORT [Concomitant]
     Active Substance: TRIAMCINOLONE ACETONIDE
  28. OXYCODONE [Concomitant]
     Active Substance: OXYCODONE
  29. QUASENSE [Concomitant]
     Active Substance: ETHINYL ESTRADIOL\LEVONORGESTREL
  30. DIOVAN [Concomitant]
     Active Substance: VALSARTAN
  31. MUPIROCIN. [Concomitant]
     Active Substance: MUPIROCIN
  32. PILOCARPINE. [Concomitant]
     Active Substance: PILOCARPINE

REACTIONS (1)
  - Hospitalisation [None]

NARRATIVE: CASE EVENT DATE: 201707
